FAERS Safety Report 14080714 (Version 1)
Quarter: 2017Q4

REPORT INFORMATION
  Report Type: Spontaneous
  Country: US (occurrence: US)
  Receive Date: 20171012
  Receipt Date: 20171012
  Transmission Date: 20180321
  Serious: No
  Sender: FDA-Public Use
  Company Number: US-MYLANLABS-2017M1037771

PATIENT
  Sex: Male
  Weight: 108 kg

DRUGS (2)
  1. FENOFIBRATE TABLETS, USP [Suspect]
     Active Substance: FENOFIBRATE
     Indication: BLOOD CHOLESTEROL INCREASED
     Dosage: 145 MG, QD
     Route: 048
  2. FENOFIBRATE TABLETS, USP [Suspect]
     Active Substance: FENOFIBRATE
     Indication: BLOOD TRIGLYCERIDES INCREASED

REACTIONS (3)
  - Feeling abnormal [Recovered/Resolved]
  - Fatigue [Recovered/Resolved]
  - Hot flush [Recovered/Resolved]
